FAERS Safety Report 9726679 (Version 1)
Quarter: 2013Q4

REPORT INFORMATION
  Report Type: Spontaneous
  Country: US (occurrence: None)
  Receive Date: 20131202
  Receipt Date: 20131202
  Transmission Date: 20140711
  Serious: Yes (Death)
  Sender: FDA-Public Use
  Company Number: None

PATIENT
  Age: 88 Year
  Sex: Female

DRUGS (10)
  1. LETAIRIS [Suspect]
     Indication: PULMONARY HYPERTENSION
  2. LLETAIRIS [Concomitant]
  3. LASIX [Concomitant]
  4. K-TAB [Concomitant]
  5. COUMADIN [Concomitant]
  6. ALBUTEROL NEBULIZER [Concomitant]
  7. DULERA [Concomitant]
  8. BENZONATATE [Concomitant]
  9. FLURBIPROFEN [Concomitant]
  10. CODEINE [Concomitant]

REACTIONS (1)
  - Death [None]
